FAERS Safety Report 5631436-9 (Version None)
Quarter: 2008Q1

REPORT INFORMATION
  Report Type: 
  Country: None (occurrence: None)
  Receive Date: 20080214
  Receipt Date: 20080204
  Transmission Date: 20080703
  Serious: Yes (Death)
  Sender: FDA-Public Use
  Company Number: 2008-01151

PATIENT
  Age: 58 Year
  Sex: Female

DRUGS (8)
  1. METHOCARBAMOL [Suspect]
  2. LORAZEPAM [Suspect]
  3. METOLAZONE [Suspect]
     Dosage: UNK
  4. POTASSIUM CHLORIDE [Suspect]
  5. MORPHINE SULFATE [Suspect]
  6. METHADONE HCL [Suspect]
  7. CORTICOSTEROIDS () [Suspect]
  8. FLECAINIDE ACETATE [Suspect]

REACTIONS (1)
  - CARDIO-RESPIRATORY ARREST [None]
